FAERS Safety Report 9276774 (Version 2)
Quarter: 2013Q2

REPORT INFORMATION
  Report Type: Report from Study
  Country: CA (occurrence: CA)
  Receive Date: 20130507
  Receipt Date: 20130517
  Transmission Date: 20140414
  Serious: Yes (Death)
  Sender: FDA-Public Use
  Company Number: CA-ACTELION-A-US2013-82778

PATIENT
  Age: 73 Year
  Sex: Female

DRUGS (8)
  1. TRACLEER [Suspect]
     Indication: PULMONARY ARTERIAL HYPERTENSION
     Dosage: UNK, BID
     Route: 048
     Dates: start: 20130307
  2. REVATIO [Concomitant]
     Dosage: 20 UNK, TID
  3. LASIX [Concomitant]
     Dosage: 40 UNK, UNK
  4. ADVAIR [Concomitant]
  5. SPIRIVA [Concomitant]
  6. ATORVASTATIN [Concomitant]
  7. ASA [Concomitant]
  8. VENTOLIN [Concomitant]

REACTIONS (3)
  - Cardiac arrest [Fatal]
  - Dyspnoea [Unknown]
  - Cyanosis [Unknown]
